FAERS Safety Report 14721031 (Version 1)
Quarter: 2018Q2

REPORT INFORMATION
  Report Type: Spontaneous
  Country: PL (occurrence: PL)
  Receive Date: 20180405
  Receipt Date: 20180405
  Transmission Date: 20180711
  Serious: Yes (Other)
  Sender: FDA-Public Use
  Company Number: PL-009507513-1804POL001782

PATIENT
  Age: 64 Year
  Sex: Male

DRUGS (4)
  1. RANLOSIN [Suspect]
     Active Substance: TAMSULOSIN HYDROCHLORIDE
     Dosage: 1X DAILY IN THE EVENING
     Dates: start: 20180311
  2. FINASTERIDE. [Suspect]
     Active Substance: FINASTERIDE
     Dosage: 1X DAILY IN THE MORNING
     Dates: start: 20180311
  3. PENTASA [Concomitant]
     Active Substance: MESALAMINE
     Indication: COLITIS ULCERATIVE
  4. RUTINOSCORBIN [Concomitant]
     Active Substance: ASCORBIC ACID\RUTIN

REACTIONS (4)
  - Tongue discomfort [Not Recovered/Not Resolved]
  - Face oedema [Not Recovered/Not Resolved]
  - Oedema mucosal [Not Recovered/Not Resolved]
  - Localised oedema [Not Recovered/Not Resolved]

NARRATIVE: CASE EVENT DATE: 20180314
